FAERS Safety Report 5017914-4 (Version None)
Quarter: 2006Q2

REPORT INFORMATION
  Report Type: 
  Country: None (occurrence: None)
  Receive Date: 20060602
  Receipt Date: 20060602
  Transmission Date: 20061013
  Serious: Yes (Other)
  Sender: FDA-Public Use
  Company Number: None

PATIENT
  Age: 28 Year
  Sex: Male
  Weight: 79.3795 kg

DRUGS (2)
  1. OXYCODONE HCL [Suspect]
     Indication: BONE DISORDER
     Dosage: 160MG  TWICE DAILY PO
     Route: 048
     Dates: start: 20051001, end: 20051101
  2. OXYCODONE HCL [Suspect]
     Indication: DERMATOFIBROSARCOMA
     Dosage: 160MG  TWICE DAILY PO
     Route: 048
     Dates: start: 20051001, end: 20051101

REACTIONS (2)
  - DRUG EFFECT DECREASED [None]
  - THERAPEUTIC RESPONSE UNEXPECTED WITH DRUG SUBSTITUTION [None]
